FAERS Safety Report 4528509-0 (Version None)
Quarter: 2004Q4

REPORT INFORMATION
  Report Type: 
  Country: None (occurrence: None)
  Receive Date: 20041216
  Receipt Date: 20031211
  Transmission Date: 20050328
  Serious: No
  Sender: FDA-Public Use
  Company Number: US-BRISTOL-MYERS SQUIBB COMPANY-12457727

PATIENT
  Age: 56 Year
  Sex: Male
  Weight: 77 kg

DRUGS (4)
  1. CHOLESTYRAMINE [Suspect]
     Indication: IRRITABLE BOWEL SYNDROME
     Dosage: DOSAGE FORM = SCOOP
     Route: 048
  2. DONNATAL [Concomitant]
  3. IMODIUM [Concomitant]
  4. MULTIVITAMIN [Concomitant]

REACTIONS (2)
  - ABDOMINAL PAIN [None]
  - FLATULENCE [None]
